FAERS Safety Report 11529115 (Version 1)
Quarter: 2015Q3

REPORT INFORMATION
  Report Type: Spontaneous
  Country: FI (occurrence: FI)
  Receive Date: 20150921
  Receipt Date: 20150921
  Transmission Date: 20151125
  Serious: Yes (Other)
  Sender: FDA-Public Use
  Company Number: FI-WATSON-2015-19592

PATIENT
  Sex: Female

DRUGS (1)
  1. CLEODETTE [Suspect]
     Active Substance: DROSPIRENONE\ETHINYL ESTRADIOL
     Indication: CONTRACEPTION
     Dosage: 1 DF, DAILY
     Route: 048
     Dates: start: 20150803, end: 20150823

REACTIONS (2)
  - Pregnancy [Unknown]
  - Inappropriate schedule of drug administration [Unknown]
